FAERS Safety Report 5326206-5 (Version None)
Quarter: 2007Q2

REPORT INFORMATION
  Report Type: 
  Country: None (occurrence: None)
  Receive Date: 20070516
  Receipt Date: 20070514
  Transmission Date: 20071010
  Serious: Yes (Death)
  Sender: FDA-Public Use
  Company Number: FR-ASTRAZENECA-2007CG00760

PATIENT
  Age: 50 Year
  Sex: Male
  Weight: 64 kg

DRUGS (5)
  1. NEXIUM [Suspect]
     Indication: ABDOMINAL PAIN UPPER
     Route: 048
     Dates: start: 20070319, end: 20070319
  2. AUGMENTIN '125' [Concomitant]
     Indication: TOOTH ABSCESS
     Dosage: 1000 + 125 MG TID
     Route: 048
     Dates: start: 20070319
  3. TRAMADOL HCL [Concomitant]
     Indication: TOOTHACHE
     Route: 048
     Dates: start: 20070319
  4. HALDOL [Concomitant]
  5. LOXAPAC [Concomitant]

REACTIONS (2)
  - FACE OEDEMA [None]
  - TONGUE OEDEMA [None]
